FAERS Safety Report 4607242-0 (Version None)
Quarter: 2005Q1

REPORT INFORMATION
  Report Type: 
  Country: None (occurrence: None)
  Receive Date: 20050309
  Receipt Date: 20050224
  Transmission Date: 20050727
  Serious: Yes (Other)
  Sender: FDA-Public Use
  Company Number: 2005037025

PATIENT
  Age: 55 Year
  Sex: Female
  Weight: 63.5036 kg

DRUGS (5)
  1. NEURONTIN [Suspect]
     Indication: BACK PAIN
     Dosage: ORAL
     Route: 048
     Dates: end: 20040101
  2. IRBESARTAN [Concomitant]
  3. ATENOLOL [Concomitant]
  4. LANSOPRAZOLE [Concomitant]
  5. SERTRALINE HYDROCHLORIDE [Concomitant]

REACTIONS (7)
  - CONVULSION [None]
  - DYSKINESIA [None]
  - MUSCLE SPASMS [None]
  - NERVE ROOT COMPRESSION [None]
  - POST PROCEDURAL COMPLICATION [None]
  - SPINAL FUSION SURGERY [None]
  - SURGICAL PROCEDURE REPEATED [None]
